FAERS Safety Report 21176764 (Version 1)
Quarter: 2022Q3

REPORT INFORMATION
  Report Type: Spontaneous
  Country: MX (occurrence: MX)
  Receive Date: 20220805
  Receipt Date: 20220805
  Transmission Date: 20221026
  Serious: No
  Sender: FDA-Public Use
  Company Number: MX-PFIZER INC-2019336572

PATIENT

DRUGS (1)
  1. MEDROXYPROGESTERONE [Suspect]
     Active Substance: MEDROXYPROGESTERONE
     Dosage: UNK

REACTIONS (3)
  - Drug dose omission by device [Unknown]
  - Needle issue [Unknown]
  - Device mechanical issue [Unknown]
